FAERS Safety Report 4377933-8 (Version None)
Quarter: 2004Q2

REPORT INFORMATION
  Report Type: 
  Country: None (occurrence: None)
  Receive Date: 20040615
  Receipt Date: 20040615
  Transmission Date: 20050107
  Serious: Yes (Other)
  Sender: FDA-Public Use
  Company Number: None

PATIENT
  Sex: Female
  Weight: 11.1 kg

DRUGS (2)
  1. NEMBUTAL [Suspect]
     Indication: CENTRAL VENOUS CATHETERISATION
     Dosage: 75 MG TOTAL DIVIDED DO INTRAVENOUS
     Route: 042
     Dates: start: 20040108, end: 20040108
  2. NEMBUTAL [Suspect]
     Indication: SEDATION
     Dosage: 75 MG TOTAL DIVIDED DO INTRAVENOUS
     Route: 042
     Dates: start: 20040108, end: 20040108

REACTIONS (2)
  - AGITATION [None]
  - IRRITABILITY [None]
